FAERS Safety Report 10936574 (Version 1)
Quarter: 2015Q1

REPORT INFORMATION
  Report Type: Spontaneous
  Country: US (occurrence: None)
  Receive Date: 20150320
  Receipt Date: 20150320
  Transmission Date: 20150721
  Serious: No
  Sender: FDA-Public Use
  Company Number: None

PATIENT
  Age: 21 Year
  Sex: Female
  Weight: 128.37 kg

DRUGS (1)
  1. ABILIFY [Suspect]
     Active Substance: ARIPIPRAZOLE
     Indication: BIPOLAR DISORDER
     Route: 048
     Dates: start: 20150227, end: 20150319

REACTIONS (6)
  - Decreased appetite [None]
  - Sedation [None]
  - Myalgia [None]
  - Vision blurred [None]
  - Mood swings [None]
  - Muscle twitching [None]

NARRATIVE: CASE EVENT DATE: 20150319
